FAERS Safety Report 6194226-7 (Version None)
Quarter: 2009Q2

REPORT INFORMATION
  Report Type: 
  Country: None (occurrence: None)
  Receive Date: 20090515
  Receipt Date: 20090515
  Transmission Date: 20091009
  Serious: Yes (Other)
  Sender: FDA-Public Use
  Company Number: None

PATIENT
  Age: 58 Year
  Sex: Female
  Weight: 116 kg

DRUGS (1)
  1. LEVETIRACETAM [Suspect]
     Indication: EPILEPSY
     Dosage: 250 MG BID PO
     Route: 048
     Dates: start: 20090415

REACTIONS (2)
  - ANTICONVULSANT DRUG LEVEL DECREASED [None]
  - PRODUCT SUBSTITUTION ISSUE [None]
